FAERS Safety Report 19080715 (Version 1)
Quarter: 2021Q1

REPORT INFORMATION
  Report Type: Spontaneous
  Country: US (occurrence: US)
  Receive Date: 20210331
  Receipt Date: 20210331
  Transmission Date: 20210420
  Serious: Yes (Other)
  Sender: FDA-Public Use
  Company Number: US-PURDUE-USA-2020-0230329

PATIENT
  Age: 13 Year
  Sex: Female

DRUGS (6)
  1. TYLENOL [Suspect]
     Active Substance: ACETAMINOPHEN
     Indication: BACK DISORDER
     Dosage: UNK
     Route: 065
  2. OXYCODONE HCL TABLETS (RHODES 91?490) [Suspect]
     Active Substance: OXYCODONE HYDROCHLORIDE
     Indication: BACK DISORDER
     Dosage: UNK
     Route: 048
  3. OXYCONTIN [Suspect]
     Active Substance: OXYCODONE HYDROCHLORIDE
     Indication: BACK DISORDER
     Dosage: UNK
     Route: 048
  4. HYDROCODONE BITARTRATE (SIMILAR TO NDA 206627) [Suspect]
     Active Substance: HYDROCODONE BITARTRATE
     Indication: BACK DISORDER
     Dosage: UNK
     Route: 048
  5. OXY IR [Suspect]
     Active Substance: OXYCODONE HYDROCHLORIDE
     Indication: BACK DISORDER
     Dosage: UNK
     Route: 048
  6. PERCOCET                           /00446701/ [Suspect]
     Active Substance: ACETAMINOPHEN\OXYCODONE HYDROCHLORIDE\OXYCODONE TEREPHTHALATE
     Indication: BACK DISORDER
     Dosage: UNK
     Route: 065

REACTIONS (4)
  - Abdominal discomfort [Unknown]
  - Drug withdrawal syndrome [Unknown]
  - Drug dependence [Unknown]
  - Illness [Unknown]
